FAERS Safety Report 8425299-6 (Version None)
Quarter: 2012Q2

REPORT INFORMATION
  Report Type: 
  Country: None (occurrence: None)
  Receive Date: 20120611
  Receipt Date: 20120601
  Transmission Date: 20120825
  Serious: Yes (Hospitalization)
  Sender: FDA-Public Use
  Company Number: US-BAYER-2012-055837

PATIENT
  Age: 26 Year
  Sex: Female
  Weight: 87.528 kg

DRUGS (9)
  1. YASMIN [Suspect]
     Indication: ACNE
  2. FLONASE [Concomitant]
     Dosage: 50 MCG
     Dates: start: 20100621
  3. DESONIDE [Concomitant]
  4. SENNOSIDES DOCUSATE SODIUM [Concomitant]
     Dosage: 8.6-50MG
     Route: 048
     Dates: start: 20100911
  5. ACETAMINOPHEN W/ CODEINE [Concomitant]
  6. OMEPRAZOLE [Concomitant]
     Dosage: 20 MG, UNK
     Route: 048
     Dates: start: 20100911
  7. SENOKOT [Concomitant]
  8. TYLENOL W/ CODEINE NO. 3 [Concomitant]
     Dosage: 300-30MG
     Route: 048
     Dates: start: 20100911
  9. RIZATRIPTAN [Concomitant]
     Dosage: 5 MG, UNK
     Route: 048
     Dates: start: 20100911

REACTIONS (1)
  - PULMONARY EMBOLISM [None]
